FAERS Safety Report 18320360 (Version 1)
Quarter: 2020Q3

REPORT INFORMATION
  Report Type: Spontaneous
  Country: US (occurrence: US)
  Receive Date: 20200929
  Receipt Date: 20200929
  Transmission Date: 20201103
  Serious: No
  Sender: FDA-Public Use
  Company Number: US-ELI_LILLY_AND_COMPANY-US202009010299

PATIENT
  Sex: Male

DRUGS (2)
  1. TALTZ [Suspect]
     Active Substance: IXEKIZUMAB
     Indication: PSORIASIS
     Dosage: 80 MG, BID (LOADING DOSE)
     Route: 058
     Dates: start: 202008
  2. TALTZ [Suspect]
     Active Substance: IXEKIZUMAB
     Dosage: 80 MG, UNKNOWN
     Route: 058
     Dates: start: 20200915

REACTIONS (4)
  - Injection site rash [Recovering/Resolving]
  - Psoriasis [Unknown]
  - Injection site pruritus [Recovering/Resolving]
  - Arthralgia [Recovering/Resolving]
